FAERS Safety Report 24160121 (Version 1)
Quarter: 2024Q3

REPORT INFORMATION
  Report Type: Spontaneous
  Country: TR (occurrence: TR)
  Receive Date: 20240801
  Receipt Date: 20240801
  Transmission Date: 20241017
  Serious: Yes (Other)
  Sender: NOVO NORDISK
  Company Number: TR-NOVOPROD-1261934

PATIENT
  Weight: 103 kg

DRUGS (8)
  1. RYZODEG 70/30 [Suspect]
     Active Substance: INSULIN ASPART\INSULIN DEGLUDEC
     Indication: Type 2 diabetes mellitus
     Dosage: 60-70 IU (1 TIME A DAY)
  2. CITOL [CITALOPRAM HYDROBROMIDE] [Concomitant]
     Indication: Antidepressant therapy
     Dosage: 40 MG, QD (1X1)
  3. PLAVIX [Concomitant]
     Active Substance: CLOPIDOGREL BISULFATE
     Indication: Product used for unknown indication
     Dosage: UNK (1X1)
  4. NEBIVOLOL HYDROCHLORIDE [Concomitant]
     Active Substance: NEBIVOLOL HYDROCHLORIDE
     Indication: Product used for unknown indication
     Dosage: 5 MG, QD (1X1)
  5. NOVORAPID [Suspect]
     Active Substance: INSULIN ASPART
     Indication: Type 2 diabetes mellitus
     Dosage: 25-30 IU (2 TIMES A DAY)
  6. NORVASC [Concomitant]
     Active Substance: AMLODIPINE BESYLATE
     Indication: Product used for unknown indication
     Dosage: 10 MG, QD (1X1)
  7. PANOCER [Concomitant]
     Indication: Gastrointestinal disorder
     Dosage: UNK (1X1)
  8. LINAGLIPTIN [Concomitant]
     Active Substance: LINAGLIPTIN
     Indication: Type 2 diabetes mellitus
     Dosage: 5 MG, QD (1X1)

REACTIONS (3)
  - Lung neoplasm malignant [Unknown]
  - Pneumonia [Unknown]
  - Glycosylated haemoglobin increased [Unknown]
